FAERS Safety Report 12673984 (Version 1)
Quarter: 2016Q3

REPORT INFORMATION
  Report Type: Report from Study
  Country: GB (occurrence: GB)
  Receive Date: 20160822
  Receipt Date: 20160822
  Transmission Date: 20161109
  Serious: Yes (Hospitalization)
  Sender: FDA-Public Use
  Company Number: GB-PFIZER INC-1456542

PATIENT
  Age: 5 Year
  Sex: Male
  Weight: 15.25 kg

DRUGS (17)
  1. VINCRISTINE SULFATE. [Suspect]
     Active Substance: VINCRISTINE SULFATE
     Dosage: UNK
     Route: 042
     Dates: start: 20120806
  2. MOVICOL [Concomitant]
     Active Substance: POLYETHYLENE GLYCOL 3350\POTASSIUM CHLORIDE\SODIUM BICARBONATE\SODIUM CHLORIDE
     Dosage: 1 (UNIT NOT REPORTED)
     Route: 065
     Dates: start: 20120730
  3. ONDANSETRON [Concomitant]
     Active Substance: ONDANSETRON
     Dosage: 7.5 MG, UNK
     Route: 065
     Dates: start: 20121207
  4. PARACETAMOL [Concomitant]
     Active Substance: ACETAMINOPHEN
     Dosage: 1 G, UNK
     Route: 065
     Dates: start: 20121208
  5. IFOSFAMIDE. [Suspect]
     Active Substance: IFOSFAMIDE
     Indication: NEOPLASM MALIGNANT
     Dosage: 2G, DAY 1 AND 2 OF EACH CYCLE
     Route: 042
     Dates: start: 20120720
  6. COTRIMOXAZOLE [Concomitant]
     Active Substance: SULFAMETHOXAZOLE\TRIMETHOPRIM
     Dosage: 920 MG, UNK
     Dates: start: 20120724
  7. GRANISETRON [Concomitant]
     Active Substance: GRANISETRON
     Dosage: 1.28 MG, UNK
  8. GRANISETRON [Concomitant]
     Active Substance: GRANISETRON
     Dosage: 960 MG, UNK
     Dates: start: 20120723
  9. METOCLOPRAMIDE. [Concomitant]
     Active Substance: METOCLOPRAMIDE
     Dosage: 7.5 MG, UNK
     Route: 065
     Dates: start: 20120720
  10. DACTINOMYCIN [Suspect]
     Active Substance: DACTINOMYCIN
     Indication: NEOPLASM MALIGNANT
     Dosage: 1 MG, FREQ: 1 CYCLICAL; INTERVAL: 1
     Route: 042
     Dates: start: 20120720
  11. PARACETAMOL [Concomitant]
     Active Substance: ACETAMINOPHEN
     Dosage: 240 MG, UNK
     Route: 065
  12. DOXORUBICIN HCL [Suspect]
     Active Substance: DOXORUBICIN HYDROCHLORIDE
     Indication: NEOPLASM MALIGNANT
     Dosage: 20 MG, CYCLIC DAY 1 AND 2 EACH CYCLE
     Route: 042
     Dates: start: 20120721
  13. CHLORHEXIDINE [Concomitant]
     Active Substance: CHLORHEXIDINE
     Dosage: UNK MOUTH WASH FORMULATOIN
  14. METOCLOPRAMIDE. [Concomitant]
     Active Substance: METOCLOPRAMIDE
     Dosage: 980 MG, UNK
     Route: 065
     Dates: start: 20121207
  15. VINCRISTINE SULFATE. [Suspect]
     Active Substance: VINCRISTINE SULFATE
     Indication: NEOPLASM MALIGNANT
     Dosage: 1 MG, WEEKLY
     Route: 042
     Dates: start: 20120720
  16. ORAMORPH [Concomitant]
     Active Substance: MORPHINE SULFATE
     Dosage: 12 MG, UNK
     Route: 065
     Dates: start: 20120725
  17. PARACETAMOL [Concomitant]
     Active Substance: ACETAMINOPHEN
     Dosage: 960 MG, UNK
     Route: 065
     Dates: start: 20120705

REACTIONS (2)
  - Febrile neutropenia [Recovered/Resolved]
  - Hypophagia [Unknown]

NARRATIVE: CASE EVENT DATE: 20120723
